FAERS Safety Report 14008890 (Version 3)
Quarter: 2018Q3

REPORT INFORMATION
  Report Type: Spontaneous
  Country: FR (occurrence: FR)
  Receive Date: 20170925
  Receipt Date: 20180712
  Transmission Date: 20181010
  Serious: Yes (Other)
  Sender: FDA-Public Use
  Company Number: FR-TEVA-807532ROM

PATIENT
  Sex: Female

DRUGS (5)
  1. DACARBAZINE. [Concomitant]
     Active Substance: DACARBAZINE
     Indication: HODGKIN^S DISEASE
     Dosage: SEVERAL CYCLES OF ABVD PROTOCOL
     Route: 065
  2. DOXORUBICIN [Concomitant]
     Active Substance: DOXORUBICIN
     Indication: HODGKIN^S DISEASE
     Dosage: SEVERAL CYCLES OF ABVD PROTOCOL
     Route: 065
  3. BLEOMYCINE [Concomitant]
     Active Substance: BLEOMYCIN SULFATE
     Indication: HODGKIN^S DISEASE
     Dosage: SEVERAL CYCLES OF ABVD PROTOCOL
     Route: 065
  4. TEVAGRASTIM [Suspect]
     Active Substance: FILGRASTIM
     Dosage: 3 INJECTIONS
     Route: 065
  5. VINBLASTINE [Concomitant]
     Active Substance: VINBLASTINE
     Indication: HODGKIN^S DISEASE
     Dosage: SEVERAL CYCLES OF ABVD PROTOCOL
     Route: 065

REACTIONS (2)
  - Lymphadenopathy [Unknown]
  - Chloroma [Unknown]
